FAERS Safety Report 22329951 (Version 1)
Quarter: 2023Q2

REPORT INFORMATION
  Report Type: Spontaneous
  Country: US (occurrence: None)
  Receive Date: 20230517
  Receipt Date: 20230517
  Transmission Date: 20230722
  Serious: No
  Sender: FDA-Public Use
  Company Number: US-ROCHE-3126375

PATIENT
  Sex: Male

DRUGS (2)
  1. ACTEMRA [Suspect]
     Active Substance: TOCILIZUMAB
     Indication: Rheumatoid arthritis
     Dosage: 200 MG/10 ML
     Route: 042
     Dates: start: 20220308
  2. ACTEMRA [Suspect]
     Active Substance: TOCILIZUMAB
     Dosage: 80 MG/4ML
     Route: 042
     Dates: start: 20220308

REACTIONS (2)
  - Joint swelling [Unknown]
  - Arthralgia [Unknown]
